FAERS Safety Report 10516875 (Version 1)
Quarter: 2014Q4

REPORT INFORMATION
  Report Type: Spontaneous
  Country: US (occurrence: None)
  Receive Date: 20141003
  Receipt Date: 20141003
  Transmission Date: 20150528
  Serious: Yes (Other)
  Sender: FDA-Public Use
  Company Number: 1320618

PATIENT
  Age: 53 Year
  Sex: Male

DRUGS (6)
  1. RIBAVIRIN (RIBAVIRIN) [Suspect]
     Active Substance: RIBAVIRIN
     Indication: HEPATITIS C
     Dosage: DOSE:WEIGHT-BASED RIBAVIRIN EXCEPT IN PATIENTS WITH COEXISTENT HEMATOLOGIC CONDITIONS IN WHOM FIXED RABVIRIN DOSE OF 800MG FOR A TOTAL OF 48 WEEKS, UNKNOWN
  2. RALTEGRAVIR (RALTEGRAVIR) [Concomitant]
     Active Substance: RALTEGRAVIR
  3. EMTRICITABINE (EMTRICITABINE) UNKNOWN [Concomitant]
     Active Substance: EMTRICITABINE
  4. PEG-INTERFERON ALFA 2A [Suspect]
     Active Substance: PEGINTERFERON ALFA-2A
     Indication: HEPATITIS C
     Dosage: SINGLE INJECTION (180 UG, 1 IN 1 WK), SUBCUTANEOUS
     Route: 058
  5. TELAPREVIR [Suspect]
     Active Substance: TELAPREVIR
     Indication: HEPATITIS C
     Dosage: TWO TABLETS EVERY 8 HOURLY, FOR THE FIRST 12 WEEKS (1 IN 1 D), UNKNOWN
  6. TENOFOVIR (TENOFOVIR) UNKNOWN [Concomitant]
     Active Substance: TENOFOVIR

REACTIONS (1)
  - Hypersensitivity [None]
